FAERS Safety Report 8289596-X (Version None)
Quarter: 2012Q2

REPORT INFORMATION
  Report Type: 
  Country: None (occurrence: None)
  Receive Date: 20120417
  Receipt Date: 20120411
  Transmission Date: 20120825
  Serious: Yes (Other)
  Sender: FDA-Public Use
  Company Number: IT-BAYER-2012-031962

PATIENT
  Age: 78 Year
  Sex: Female

DRUGS (1)
  1. NEXAVAR [Suspect]
     Indication: HEPATIC NEOPLASM MALIGNANT
     Dosage: DAILY DOSE 800 MG
     Route: 048
     Dates: start: 20110506, end: 20110516

REACTIONS (6)
  - DIARRHOEA [None]
  - ASTHENIA [None]
  - ABASIA [None]
  - HYPERTENSION [None]
  - RASH PAPULAR [None]
  - PAIN IN EXTREMITY [None]
